FAERS Safety Report 19073766 (Version 1)
Quarter: 2021Q1

REPORT INFORMATION
  Report Type: Spontaneous
  Country: US (occurrence: US)
  Receive Date: 20210330
  Receipt Date: 20210330
  Transmission Date: 20210420
  Serious: No
  Sender: FDA-Public Use
  Company Number: US-ASTRAZENECA-2021A128393

PATIENT
  Sex: Female

DRUGS (2)
  1. PULMICORT FLEXHALER [Suspect]
     Active Substance: BUDESONIDE
     Indication: DYSPNOEA
     Dosage: 180 MCG, INHALATION, 1 PUFF TWICE DAILY
     Route: 055
     Dates: start: 20210303
  2. ALBUTEROL. [Concomitant]
     Active Substance: ALBUTEROL
     Dosage: AS REQUIRED
     Route: 055

REACTIONS (4)
  - Off label use [Unknown]
  - Intentional device misuse [Unknown]
  - Dyspnoea [Not Recovered/Not Resolved]
  - Drug dose omission by device [Unknown]
